FAERS Safety Report 25660081 (Version 1)
Quarter: 2025Q3

REPORT INFORMATION
  Report Type: Spontaneous
  Country: CN (occurrence: CN)
  Receive Date: 20250808
  Receipt Date: 20250808
  Transmission Date: 20251020
  Serious: Yes (Other)
  Sender: PFIZER
  Company Number: CN-PFIZER INC-PV202500094323

PATIENT
  Age: 53 Year
  Sex: Female
  Weight: 50 kg

DRUGS (3)
  1. SOLU-MEDROL [Suspect]
     Active Substance: METHYLPREDNISOLONE SODIUM SUCCINATE
     Indication: Peripheral nerve lesion
     Dosage: 40 MG, 1X/DAY
     Route: 041
     Dates: start: 20250524
  2. SOLU-MEDROL [Suspect]
     Active Substance: METHYLPREDNISOLONE SODIUM SUCCINATE
     Indication: Antiinflammatory therapy
     Dosage: 80 MG, DAILY
     Dates: start: 20250530
  3. SOLU-MEDROL [Suspect]
     Active Substance: METHYLPREDNISOLONE SODIUM SUCCINATE
     Indication: Immunosuppression

REACTIONS (5)
  - Hepatic function abnormal [Recovering/Resolving]
  - Alanine aminotransferase increased [Recovering/Resolving]
  - Aspartate aminotransferase increased [Recovering/Resolving]
  - Gamma-glutamyltransferase increased [Recovering/Resolving]
  - Prealbumin increased [Recovering/Resolving]

NARRATIVE: CASE EVENT DATE: 20250605
